FAERS Safety Report 10790984 (Version 3)
Quarter: 2017Q1

REPORT INFORMATION
  Report Type: Spontaneous
  Country: US (occurrence: US)
  Receive Date: 20150212
  Receipt Date: 20170203
  Transmission Date: 20170428
  Serious: No
  Sender: FDA-Public Use
  Company Number: US-GILEAD-2015-0136957

PATIENT
  Age: 13 Year
  Sex: Female

DRUGS (3)
  1. TYVASO [Concomitant]
     Active Substance: TREPROSTINIL
  2. ADCIRCA [Concomitant]
     Active Substance: TADALAFIL
  3. LETAIRIS [Suspect]
     Active Substance: AMBRISENTAN
     Indication: PRODUCT USED FOR UNKNOWN INDICATION
     Dosage: 5 MG, QD
     Route: 065
     Dates: start: 20140829

REACTIONS (1)
  - Off label use [Not Recovered/Not Resolved]
